FAERS Safety Report 23784522 (Version 1)
Quarter: 2024Q2

REPORT INFORMATION
  Report Type: Spontaneous
  Country: US (occurrence: US)
  Receive Date: 20240425
  Receipt Date: 20240425
  Transmission Date: 20240715
  Serious: Yes (Other)
  Sender: FDA-Public Use
  Company Number: US-BRISTOL-MYERS SQUIBB COMPANY-2024-065140

PATIENT
  Age: 71 Year
  Sex: Male
  Weight: 94.35 kg

DRUGS (5)
  1. REVLIMID [Suspect]
     Active Substance: LENALIDOMIDE
     Indication: Diffuse large B-cell lymphoma
     Dosage: TAKE 1 CAPSULE P.O. ONCE DAILY FOR 21 DAYS ON AND 7 DAYS OFF. REPEAT EVERY 28 DAYS.
     Route: 048
  2. JATENZO [Concomitant]
     Active Substance: TESTOSTERONE UNDECANOATE
     Indication: Product used for unknown indication
     Dosage: BID
     Route: 048
  3. ELIQUIS [Concomitant]
     Active Substance: APIXABAN
     Indication: Product used for unknown indication
     Dosage: BID
     Route: 048
  4. MONTELUKAST [Concomitant]
     Active Substance: MONTELUKAST SODIUM
     Indication: Product used for unknown indication
     Dosage: DAILY
     Route: 048
  5. LEVOTHYROXINE [Concomitant]
     Active Substance: LEVOTHYROXINE\LEVOTHYROXINE SODIUM
     Indication: Product used for unknown indication
     Dosage: DAILY
     Route: 048
     Dates: start: 20130610

REACTIONS (2)
  - Herpes zoster [Recovering/Resolving]
  - Off label use [Unknown]
